FAERS Safety Report 22109345 (Version 3)
Quarter: 2023Q2

REPORT INFORMATION
  Report Type: Spontaneous
  Country: RU (occurrence: RU)
  Receive Date: 20230317
  Receipt Date: 20230523
  Transmission Date: 20230722
  Serious: Yes (Hospitalization, Other)
  Sender: FDA-Public Use
  Company Number: RU-002147023-NVSC2023RU057172

PATIENT
  Age: 17 Year
  Sex: Female

DRUGS (1)
  1. COSENTYX [Suspect]
     Active Substance: SECUKINUMAB
     Indication: Juvenile idiopathic arthritis
     Dosage: 150 MG
     Route: 058
     Dates: start: 202211, end: 202212

REACTIONS (6)
  - Stomatitis haemorrhagic [Recovered/Resolved]
  - Madarosis [Not Recovered/Not Resolved]
  - Haemangioma [Recovered/Resolved]
  - Skin swelling [Recovered/Resolved]
  - Gingivitis [Recovered/Resolved]
  - Palate injury [Recovered/Resolved]

NARRATIVE: CASE EVENT DATE: 20221201
